FAERS Safety Report 4360922-7 (Version None)
Quarter: 2004Q2

REPORT INFORMATION
  Report Type: 
  Country: None (occurrence: None)
  Receive Date: 20040519
  Receipt Date: 20040519
  Transmission Date: 20050107
  Serious: No
  Sender: FDA-Public Use
  Company Number: None

PATIENT
  Age: 32 Year
  Sex: Female
  Weight: 58.9676 kg

DRUGS (1)
  1. LANTUS [Suspect]
     Indication: DIABETES MELLITUS
     Dosage: 4 UNITS SUB  TID AC
     Dates: start: 20040212, end: 20040213

REACTIONS (2)
  - HYPOGLYCAEMIA [None]
  - MEDICATION ERROR [None]
